FAERS Safety Report 6842737-0 (Version None)
Quarter: 2010Q3

REPORT INFORMATION
  Report Type: 
  Country: None (occurrence: None)
  Receive Date: 20100709
  Receipt Date: 20100705
  Transmission Date: 20110219
  Serious: Yes (Hospitalization)
  Sender: FDA-Public Use
  Company Number: 2010TJ0130

PATIENT
  Age: 38 Year
  Sex: Female

DRUGS (4)
  1. EPINEPHRINE [Suspect]
     Indication: STATUS ASTHMATICUS
     Dosage: 0.3 MG,
  2. NEBULISED SALBUTAMOL [Suspect]
     Indication: STATUS ASTHMATICUS
  3. IPRATROPIUM BROMIDE [Concomitant]
  4. METHYLPREDNISOLONE [Concomitant]

REACTIONS (9)
  - BLOOD PH DECREASED [None]
  - DILATATION VENTRICULAR [None]
  - LEFT VENTRICULAR DYSFUNCTION [None]
  - LUNG HYPERINFLATION [None]
  - MYOCARDIAL INFARCTION [None]
  - PO2 INCREASED [None]
  - RESPIRATORY DISTRESS [None]
  - SINUS TACHYCARDIA [None]
  - VENTRICULAR HYPOKINESIA [None]
